FAERS Safety Report 7759786-0 (Version None)
Quarter: 2011Q3

REPORT INFORMATION
  Report Type: 
  Country: None (occurrence: None)
  Receive Date: 20110919
  Receipt Date: 20110913
  Transmission Date: 20111222
  Serious: Yes (Other)
  Sender: FDA-Public Use
  Company Number: JP-ABBOTT-11P-087-0710371-00

PATIENT
  Sex: Male
  Weight: 48.2 kg

DRUGS (13)
  1. NATURAL ALUMINUM SILICATE [Concomitant]
     Indication: CROHN'S DISEASE
  2. ALBUMIN TANNATE [Concomitant]
     Indication: DIARRHOEA
     Route: 048
     Dates: start: 20110210
  3. ALBUMIN TANNATE [Concomitant]
     Indication: CROHN'S DISEASE
  4. HUMIRA [Suspect]
     Dates: start: 20110310
  5. MIXED AMINO ACID/CARBOHYDRATE/ELECTROLYTE/VITAMIN COMBINED DRUG [Concomitant]
     Indication: NUTRITIONAL SUPPORT
     Dosage: 1000 MILLILITER, DAILY
     Route: 042
     Dates: start: 20110210
  6. HUMIRA [Suspect]
     Indication: CROHN'S DISEASE
     Route: 058
     Dates: start: 20110212, end: 20110212
  7. HUMIRA [Suspect]
     Dates: start: 20110224, end: 20110224
  8. REBAMIPIDE [Concomitant]
     Indication: GASTROINTESTINAL DISORDER
     Route: 048
     Dates: start: 20110210
  9. CLOSTRIDIUM BUTYRICUM COMBINED DRUG [Concomitant]
     Indication: DIARRHOEA
     Dosage: 3 GRAM, DAILY
     Route: 048
     Dates: start: 20110210
  10. NATURAL ALUMINUM SILICATE [Concomitant]
     Indication: DIARRHOEA
     Route: 048
     Dates: start: 20110210
  11. LOPERAMIDE HCL [Concomitant]
     Indication: ABDOMINAL PAIN
     Route: 048
     Dates: start: 20110210
  12. CLOSTRIDIUM BUTYRICUM COMBINED DRUG [Concomitant]
     Indication: CROHN'S DISEASE
  13. MESALAMINE [Concomitant]
     Indication: CROHN'S DISEASE
     Route: 048
     Dates: start: 20110210

REACTIONS (6)
  - DANDRUFF [None]
  - INTESTINAL OBSTRUCTION [None]
  - DIARRHOEA [None]
  - OEDEMA PERIPHERAL [None]
  - HYPOKALAEMIA [None]
  - ABDOMINAL PAIN [None]
